FAERS Safety Report 17021824 (Version 1)
Quarter: 2019Q4

REPORT INFORMATION
  Report Type: Spontaneous
  Country: US (occurrence: US)
  Receive Date: 20191112
  Receipt Date: 20191112
  Transmission Date: 20200122
  Serious: Yes (Hospitalization)
  Sender: FDA-Public Use
  Company Number: US-GUERBET-US-20190260

PATIENT
  Age: 83 Year
  Sex: Male

DRUGS (1)
  1. OPTIRAY [Suspect]
     Active Substance: IOVERSOL
     Indication: PRODUCT USED FOR UNKNOWN INDICATION
     Dosage: UNKNOWN DOSE OF IOVERSOL GIVEN INTRAOPERATIVELY DURING RLE ANGIOPLASTY

REACTIONS (2)
  - Parotid gland enlargement [Unknown]
  - Respiratory failure [Recovering/Resolving]
